FAERS Safety Report 8852463 (Version 1)
Quarter: 2012Q4

REPORT INFORMATION
  Report Type: Spontaneous
  Country: US (occurrence: None)
  Receive Date: 20121017
  Receipt Date: 20121017
  Transmission Date: 20130627
  Serious: Yes (Other)
  Sender: FDA-Public Use
  Company Number: 2012MA012196

PATIENT
  Sex: Female

DRUGS (1)
  1. BACITRACIN ZINC [Suspect]
     Route: 061

REACTIONS (2)
  - Hypersensitivity [None]
  - Product substitution issue [None]
